FAERS Safety Report 10647391 (Version 4)
Quarter: 2015Q1

REPORT INFORMATION
  Report Type: Report from Study
  Country: GB (occurrence: GB)
  Receive Date: 20141211
  Receipt Date: 20150116
  Transmission Date: 20150720
  Serious: Yes (Disabling)
  Sender: FDA-Public Use
  Company Number: GB-ABBVIE-14K-167-1295571-00

PATIENT
  Age: 63 Year
  Sex: Female

DRUGS (1)
  1. HUMIRA [Suspect]
     Active Substance: ADALIMUMAB
     Indication: RHEUMATOID ARTHRITIS
     Route: 065
     Dates: start: 20140909

REACTIONS (27)
  - Impaired driving ability [Unknown]
  - Protein total increased [Unknown]
  - Emotional distress [Unknown]
  - Mood altered [Unknown]
  - Arthralgia [Unknown]
  - Diarrhoea [Recovered/Resolved]
  - Headache [Unknown]
  - Drug ineffective [Unknown]
  - Sleep disorder [Unknown]
  - Pruritus generalised [Unknown]
  - Red blood cell sedimentation rate increased [Unknown]
  - Pain [Unknown]
  - Drug effect decreased [Unknown]
  - Diarrhoea [Not Recovered/Not Resolved]
  - Arthropathy [Recovering/Resolving]
  - Blepharospasm [Unknown]
  - Anaemia [Unknown]
  - Drug effect incomplete [Unknown]
  - Arthralgia [Unknown]
  - Red blood cell sedimentation rate abnormal [Recovering/Resolving]
  - Eye pruritus [Unknown]
  - Ocular hyperaemia [Unknown]
  - Diarrhoea [Recovering/Resolving]
  - Muscle twitching [Recovering/Resolving]
  - C-reactive protein increased [Recovering/Resolving]
  - Nausea [Unknown]
  - Gout [Unknown]

NARRATIVE: CASE EVENT DATE: 2014
